FAERS Safety Report 18737869 (Version 1)
Quarter: 2021Q1

REPORT INFORMATION
  Report Type: Report from Study
  Country: US (occurrence: US)
  Receive Date: 20210113
  Receipt Date: 20210113
  Transmission Date: 20210419
  Serious: No
  Sender: FDA-Public Use
  Company Number: US-VANDA PHARMACEUTICALS, INC-2020TASUS004122

PATIENT
  Sex: Male

DRUGS (1)
  1. HETLIOZ [Suspect]
     Active Substance: TASIMELTEON
     Indication: NON-24-HOUR SLEEP-WAKE DISORDER
     Dosage: 20 MG, UNK
     Dates: start: 20200401, end: 202006

REACTIONS (4)
  - Abnormal dreams [Recovered/Resolved]
  - Functional gastrointestinal disorder [Recovered/Resolved]
  - Nightmare [Recovered/Resolved]
  - Somnolence [Recovered/Resolved]
